FAERS Safety Report 5744442-0 (Version None)
Quarter: 2008Q2

REPORT INFORMATION
  Report Type: 
  Country: None (occurrence: None)
  Receive Date: 20080520
  Receipt Date: 20080509
  Transmission Date: 20081010
  Serious: Yes (Hospitalization)
  Sender: FDA-Public Use
  Company Number: DE-ROCHE-550499

PATIENT
  Sex: Female
  Weight: 50 kg

DRUGS (3)
  1. CELLCEPT [Suspect]
     Dosage: 2X500MG/DAY.
     Route: 048
  2. LEVOTHYROXINE SODIUM [Concomitant]
     Indication: HYPOTHYROIDISM
     Route: 048
  3. LYRICA [Concomitant]
     Indication: ANALGESIA
     Route: 048

REACTIONS (3)
  - HEADACHE [None]
  - OPTIC NEUROPATHY [None]
  - VISUAL ACUITY REDUCED [None]
